FAERS Safety Report 7989787-9 (Version None)
Quarter: 2011Q4

REPORT INFORMATION
  Report Type: 
  Country: None (occurrence: None)
  Receive Date: 20111219
  Receipt Date: 20110103
  Transmission Date: 20120403
  Serious: Yes (Hospitalization)
  Sender: FDA-Public Use
  Company Number: US-ASTRAZENECA-2010SE58366

PATIENT
  Age: 85 Year
  Sex: Female

DRUGS (6)
  1. FOSAMAX [Concomitant]
  2. PRILOSEC [Concomitant]
  3. INDERAL [Concomitant]
  4. CRESTOR [Suspect]
     Route: 048
     Dates: end: 20101121
  5. NORVASC [Concomitant]
  6. CLORAZEPATE DIPOTASSIUM [Concomitant]

REACTIONS (2)
  - PAIN [None]
  - PANCREATITIS [None]
